FAERS Safety Report 15734797 (Version 1)
Quarter: 2018Q4

REPORT INFORMATION
  Report Type: Spontaneous
  Country: US (occurrence: US)
  Receive Date: 20181203
  Receipt Date: 20181203
  Transmission Date: 20190205
  Serious: Yes (Death)
  Sender: FDA-Public Use
  Company Number: None

PATIENT
  Age: 79 Year
  Sex: Male
  Weight: 100.1 kg

DRUGS (2)
  1. ZOLADEX [Suspect]
     Active Substance: GOSERELIN ACETATE
  2. CASODEX [Suspect]
     Active Substance: BICALUTAMIDE

REACTIONS (12)
  - Osteomyelitis [None]
  - Testicular pain [None]
  - Scrotal inflammation [None]
  - Dehydration [None]
  - Testicular swelling [None]
  - Urosepsis [None]
  - Acute kidney injury [None]
  - Scrotal pain [None]
  - Rectal discharge [None]
  - Asthenia [None]
  - Chest pain [None]
  - Scrotal swelling [None]

NARRATIVE: CASE EVENT DATE: 20181109
